FAERS Safety Report 6336597-4 (Version None)
Quarter: 2009Q3

REPORT INFORMATION
  Report Type: 
  Country: None (occurrence: None)
  Receive Date: 20090901
  Receipt Date: 20090828
  Transmission Date: 20100115
  Serious: Yes (Death, Other)
  Sender: FDA-Public Use
  Company Number: US-JNJFOC-20090900129

PATIENT
  Sex: Female

DRUGS (4)
  1. TAPENTADOL HYDROCHLORIDE [Suspect]
     Indication: BACK PAIN
     Route: 048
  2. NORCO [Concomitant]
     Indication: PAIN
     Route: 048
  3. VICODIN [Concomitant]
  4. UNKNOWN MEDICATION [Concomitant]

REACTIONS (1)
  - DEATH [None]
